FAERS Safety Report 5794518-7 (Version None)
Quarter: 2008Q2

REPORT INFORMATION
  Report Type: 
  Country: None (occurrence: None)
  Receive Date: 20080626
  Receipt Date: 20080617
  Transmission Date: 20081010
  Serious: Yes (Other)
  Sender: FDA-Public Use
  Company Number: 6043692

PATIENT
  Age: 70 Year
  Sex: Female

DRUGS (3)
  1. BISOPROLOL FUMARATE [Suspect]
     Indication: AORTIC DISSECTION
     Dosage: ORAL
     Route: 048
  2. NIFEDIPINE [Concomitant]
  3. ACE INHIBITOR [Concomitant]

REACTIONS (1)
  - PRINZMETAL ANGINA [None]
